FAERS Safety Report 6507396-5 (Version None)
Quarter: 2009Q4

REPORT INFORMATION
  Report Type: 
  Country: None (occurrence: None)
  Receive Date: 20091221
  Receipt Date: 20091210
  Transmission Date: 20100525
  Serious: Yes (Other)
  Sender: FDA-Public Use
  Company Number: US-BAYER-200930708NA

PATIENT
  Age: 35 Year
  Sex: Female
  Weight: 56 kg

DRUGS (6)
  1. YAZ [Suspect]
     Indication: CONTRACEPTION
     Route: 048
     Dates: start: 20080725, end: 20080801
  2. YAZ [Suspect]
     Dates: start: 20090201, end: 20090701
  3. EFFEXOR XR [Concomitant]
  4. SYNTHROID [Concomitant]
     Indication: HYPOTHYROIDISM
     Route: 048
     Dates: start: 20060801
  5. LAMICTAL [Concomitant]
     Dosage: UNIT DOSE: 25 MG
     Route: 048
  6. ENSURE [Concomitant]

REACTIONS (10)
  - CRYING [None]
  - DECREASED APPETITE [None]
  - DYSMENORRHOEA [None]
  - EMOTIONAL DISORDER [None]
  - MAJOR DEPRESSION [None]
  - MOOD SWINGS [None]
  - RASH GENERALISED [None]
  - SUICIDAL IDEATION [None]
  - TACHYPHRENIA [None]
  - VAGINAL HAEMORRHAGE [None]
